FAERS Safety Report 4947808-1 (Version None)
Quarter: 2006Q1

REPORT INFORMATION
  Report Type: 
  Country: None (occurrence: None)
  Receive Date: 20060320
  Receipt Date: 20060310
  Transmission Date: 20060701
  Serious: Yes (Life-Threatening)
  Sender: FDA-Public Use
  Company Number: FR-GLAXOSMITHKLINE-B0415291A

PATIENT
  Age: 74 Year
  Sex: Female

DRUGS (3)
  1. DEROXAT [Suspect]
     Indication: AFFECTIVE DISORDER
     Dosage: 20MG PER DAY
     Route: 048
     Dates: start: 20030101
  2. TERALITHE [Suspect]
     Indication: AFFECTIVE DISORDER
     Dosage: 250MG PER DAY
     Route: 048
     Dates: start: 20010101
  3. HALDOL [Suspect]
     Indication: AFFECTIVE DISORDER
     Dosage: 1MG PER DAY
     Route: 048
     Dates: start: 20030101

REACTIONS (8)
  - BUNDLE BRANCH BLOCK LEFT [None]
  - CONDUCTION DISORDER [None]
  - DIZZINESS [None]
  - ELECTROCARDIOGRAM PR SHORTENED [None]
  - ELECTROCARDIOGRAM REPOLARISATION ABNORMALITY [None]
  - MITRAL VALVE DISEASE [None]
  - SYNCOPE [None]
  - VENTRICULAR HYPOKINESIA [None]
